FAERS Safety Report 8474913-8 (Version None)
Quarter: 2012Q2

REPORT INFORMATION
  Report Type: 
  Country: None (occurrence: None)
  Receive Date: 20120622
  Receipt Date: 20120613
  Transmission Date: 20120825
  Serious: Yes (Death)
  Sender: FDA-Public Use
  Company Number: 2011MA016018

PATIENT
  Age: 72 Year
  Sex: Female

DRUGS (9)
  1. MIRTAZAPINE [Suspect]
     Indication: SCHIZOAFFECTIVE DISORDER
     Dosage: 30 MG, QD, PO
     Route: 048
     Dates: end: 20111023
  2. ESCITALOPRAM OXALATE [Suspect]
     Indication: SCHIZOAFFECTIVE DISORDER
     Dosage: 30 MG, QD, PO
     Route: 048
     Dates: end: 20111023
  3. ALPRAZOLAM [Concomitant]
  4. LITHIUM CITRATE [Suspect]
     Indication: SCHIZOAFFECTIVE DISORDER
     Dosage: 6 MMOL, PO
     Route: 048
     Dates: end: 20111023
  5. FERRO DURETTER [Concomitant]
  6. CENTYL MED [Concomitant]
  7. MIRTAZAPINE [Suspect]
     Indication: SCHIZOAFFECTIVE DISORDER
     Dosage: 30 MG, QD, PO
     Route: 048
     Dates: end: 20111023
  8. KALIUMKLORID [Concomitant]
  9. ZIPRASIDONE HYDROCHLORIDE [Suspect]
     Indication: SCHIZOAFFECTIVE DISORDER
     Dosage: 40 MG, BID, PO
     Route: 048
     Dates: end: 20111023

REACTIONS (23)
  - HYPERVENTILATION [None]
  - MULTI-ORGAN FAILURE [None]
  - CONFUSIONAL STATE [None]
  - POST PROCEDURAL COMPLICATION [None]
  - GENERAL PHYSICAL HEALTH DETERIORATION [None]
  - DEPRESSED LEVEL OF CONSCIOUSNESS [None]
  - PYREXIA [None]
  - FALL [None]
  - CONSTIPATION [None]
  - HEPATIC CIRRHOSIS [None]
  - RHABDOMYOLYSIS [None]
  - DYSPNOEA [None]
  - HUMERUS FRACTURE [None]
  - NEUROLEPTIC MALIGNANT SYNDROME [None]
  - URINARY TRACT INFECTION [None]
  - CARDIAC HYPERTROPHY [None]
  - MYOCARDIAL INFARCTION [None]
  - RENAL FAILURE ACUTE [None]
  - ORGAN FAILURE [None]
  - SEROTONIN SYNDROME [None]
  - LACTIC ACIDOSIS [None]
  - LACUNAR INFARCTION [None]
  - HYPERTENSION [None]
